FAERS Safety Report 5140397-0 (Version None)
Quarter: 2006Q4

REPORT INFORMATION
  Report Type: 
  Country: None (occurrence: None)
  Receive Date: 20061024
  Receipt Date: 20061010
  Transmission Date: 20070319
  Serious: Yes (Hospitalization, Other)
  Sender: FDA-Public Use
  Company Number: US200610001762

PATIENT
  Age: 73 Year
  Sex: Female

DRUGS (4)
  1. HUMALOG [Suspect]
     Indication: DIABETES MELLITUS
     Dosage: 3 U, MORNING, NOON, NIGHT
     Dates: start: 20060801
  2. HUMULIN N [Suspect]
     Indication: DIABETES MELLITUS
     Dosage: SUBCUTANEOUS
     Route: 058
     Dates: end: 20060801
  3. LANTUS [Concomitant]
  4. CLONIDINE [Concomitant]

REACTIONS (15)
  - BLOOD GLUCOSE DECREASED [None]
  - BLOOD GLUCOSE INCREASED [None]
  - CARDIAC FAILURE [None]
  - CONSTIPATION [None]
  - DRUG INEFFECTIVE [None]
  - EYE HAEMORRHAGE [None]
  - FEELING HOT [None]
  - HYPERHIDROSIS [None]
  - INCORRECT DOSE ADMINISTERED [None]
  - LOSS OF CONSCIOUSNESS [None]
  - MALAISE [None]
  - PHARMACEUTICAL PRODUCT COMPLAINT [None]
  - PULSE ABNORMAL [None]
  - RENAL FAILURE [None]
  - RETINOPATHY [None]
